FAERS Safety Report 9331077 (Version 3)
Quarter: 2014Q1

REPORT INFORMATION
  Report Type: Report from Study
  Country: CA (occurrence: CA)
  Receive Date: 20130605
  Receipt Date: 20140120
  Transmission Date: 20141002
  Serious: Yes (Death, Hospitalization)
  Sender: FDA-Public Use
  Company Number: CA-JNJFOC-20130522440

PATIENT
  Sex: Male
  Weight: 67 kg

DRUGS (10)
  1. REMICADE [Suspect]
     Indication: CROHN^S DISEASE
     Route: 042
     Dates: start: 20130319, end: 20130402
  2. BISOPROLOL [Concomitant]
     Route: 065
  3. PENTASA [Concomitant]
     Dosage: 200 UNIT UNSPECIFIED
     Route: 065
  4. LASIX [Concomitant]
     Route: 065
  5. CRESTOR [Concomitant]
     Route: 065
  6. COUMADIN [Concomitant]
     Dosage: 4-6 MG (5-2 HOURS)
     Route: 065
  7. EZETROL [Concomitant]
     Route: 065
  8. DIOVAN [Concomitant]
     Route: 065
  9. PANTOPRAZOLE [Concomitant]
     Route: 065
  10. PREDNISONE [Concomitant]
     Route: 065

REACTIONS (3)
  - Cardiac failure [Fatal]
  - Crohn^s disease [Unknown]
  - Infection [Unknown]
